FAERS Safety Report 8509382-2 (Version None)
Quarter: 2012Q3

REPORT INFORMATION
  Report Type: 
  Country: None (occurrence: None)
  Receive Date: 20120713
  Receipt Date: 20101001
  Transmission Date: 20120928
  Serious: Yes (Hospitalization)
  Sender: FDA-Public Use
  Company Number: ZA-ROCHE-1087250

PATIENT
  Age: 28 Year
  Sex: Female

DRUGS (6)
  1. CELLCEPT [Suspect]
     Route: 048
  2. PROGRAF [Concomitant]
  3. PROGRAF [Concomitant]
  4. PREDNISONE [Concomitant]
  5. CELLCEPT [Suspect]
     Indication: RENAL TRANSPLANT
     Route: 048
  6. PREDNISONE [Concomitant]

REACTIONS (3)
  - KIDNEY TRANSPLANT REJECTION [None]
  - PAIN IN EXTREMITY [None]
  - MENINGITIS [None]
